FAERS Safety Report 9109346 (Version 1)
Quarter: 2013Q1

REPORT INFORMATION
  Report Type: Spontaneous
  Country: FR (occurrence: FR)
  Receive Date: 20130222
  Receipt Date: 20130222
  Transmission Date: 20140127
  Serious: Yes (Hospitalization, Other)
  Sender: FDA-Public Use
  Company Number: PHHY2013FR017290

PATIENT
  Age: 71 Year
  Sex: Male

DRUGS (3)
  1. GLIVEC [Suspect]
     Indication: CHRONIC MYELOID LEUKAEMIA
     Dosage: 400 MG, QD
     Route: 048
     Dates: start: 200403
  2. TIMOPTOL [Concomitant]
     Dosage: UNK UKN, UNK
  3. LIPANTHYL [Concomitant]
     Dosage: UNK UKN, UNK

REACTIONS (2)
  - B-cell lymphoma [Not Recovered/Not Resolved]
  - Second primary malignancy [Unknown]
